FAERS Safety Report 15358084 (Version 1)
Quarter: 2018Q3

REPORT INFORMATION
  Report Type: Spontaneous
  Country: IE (occurrence: IE)
  Receive Date: 20180906
  Receipt Date: 20180906
  Transmission Date: 20181010
  Serious: Yes (Other)
  Sender: FDA-Public Use
  Company Number: IE-JNJFOC-20180343131

PATIENT

DRUGS (7)
  1. PREDNISOLONE. [Concomitant]
     Active Substance: PREDNISOLONE
     Route: 065
  2. GOLIMUMAB [Suspect]
     Active Substance: GOLIMUMAB
     Indication: COLITIS ULCERATIVE
     Route: 058
  3. MESALAMINE. [Concomitant]
     Active Substance: MESALAMINE
     Dosage: 2.0?4.8 G/DAY
     Route: 065
  4. GOLIMUMAB [Suspect]
     Active Substance: GOLIMUMAB
     Indication: COLITIS ULCERATIVE
     Route: 058
  5. GOLIMUMAB [Suspect]
     Active Substance: GOLIMUMAB
     Indication: COLITIS ULCERATIVE
     Route: 058
  6. AZATHIOPRINE. [Concomitant]
     Active Substance: AZATHIOPRINE
     Dosage: 2.0?2.5 MG/KG/DAY
     Route: 065
  7. 5?AMINOSALICYLIC ACID [Concomitant]
     Active Substance: MESALAMINE
     Route: 065

REACTIONS (9)
  - Off label use [Unknown]
  - Lower respiratory tract infection [Unknown]
  - Rash [Unknown]
  - Neurological symptom [Unknown]
  - Adverse drug reaction [Unknown]
  - Drug intolerance [Unknown]
  - Myalgia [Unknown]
  - Drug effect decreased [Unknown]
  - Inappropriate schedule of drug administration [Unknown]
